FAERS Safety Report 8605645-0 (Version None)
Quarter: 2012Q3

REPORT INFORMATION
  Report Type: 
  Country: None (occurrence: None)
  Receive Date: 20120820
  Receipt Date: 20120809
  Transmission Date: 20120928
  Serious: Yes (Other)
  Sender: FDA-Public Use
  Company Number: US-ASTRAZENECA-2011SE26822

PATIENT
  Age: 761 Month
  Sex: Female
  Weight: 73.5 kg

DRUGS (21)
  1. SEROQUEL [Suspect]
     Route: 048
     Dates: start: 20090201, end: 20100501
  2. NEURONTIN [Concomitant]
  3. VITAMIN [Concomitant]
  4. CALCIUM [Concomitant]
  5. VALIUM [Concomitant]
  6. PAXIL [Concomitant]
  7. SEROQUEL [Suspect]
     Route: 048
  8. SEROQUEL [Suspect]
     Indication: BIPOLAR I DISORDER
     Route: 048
     Dates: start: 20100101
  9. SEROQUEL [Suspect]
     Route: 048
  10. PROMETHEZINE [Concomitant]
  11. VIT D AND CALCIUM [Concomitant]
  12. SYNTHROID [Concomitant]
  13. LITHIUM CARBONATE [Concomitant]
  14. LITHIUM CARBONATE [Concomitant]
  15. NUROTINE [Concomitant]
  16. INDERAL [Concomitant]
  17. POTASSIUM CHLORIDE [Concomitant]
  18. VALIUM [Concomitant]
  19. SEROQUEL [Suspect]
     Route: 048
     Dates: start: 20090101
  20. SEROQUEL [Suspect]
     Dosage: HALF AT 10 P FOLLOWED BY OTHER HALF AT 11P
     Route: 048
  21. ZYRTEC [Concomitant]

REACTIONS (14)
  - MENISCUS LESION [None]
  - HYPERTENSION [None]
  - HUNGER [None]
  - DIZZINESS [None]
  - MANIA [None]
  - PRESYNCOPE [None]
  - WEIGHT INCREASED [None]
  - HYPERSOMNIA [None]
  - DRUG DOSE OMISSION [None]
  - INTENTIONAL DRUG MISUSE [None]
  - ROAD TRAFFIC ACCIDENT [None]
  - MALAISE [None]
  - FACIAL NERVE DISORDER [None]
  - SOMNOLENCE [None]
